FAERS Safety Report 25419502 (Version 2)
Quarter: 2025Q3

REPORT INFORMATION
  Report Type: Report from Study
  Country: US (occurrence: US)
  Receive Date: 20250610
  Receipt Date: 20250722
  Transmission Date: 20251021
  Serious: Yes (Hospitalization)
  Sender: ALEXION PHARMACEUTICALS
  Company Number: US-AstraZeneca-CH-00886124A

PATIENT
  Sex: Female
  Weight: 48.534 kg

DRUGS (1)
  1. OLAPARIB [Suspect]
     Active Substance: OLAPARIB
     Indication: Ductal adenocarcinoma of pancreas
     Dosage: 300 MILLIGRAM, BID

REACTIONS (8)
  - Diarrhoea [Unknown]
  - Laboratory test abnormal [Unknown]
  - Cell marker increased [Unknown]
  - Pyrexia [Unknown]
  - Impaired work ability [Unknown]
  - Anxiety [Unknown]
  - Red blood cell count decreased [Unknown]
  - White blood cell count decreased [Unknown]
